FAERS Safety Report 6629281 (Version 3)
Quarter: 2012Q4

REPORT INFORMATION
  Report Type: 
  Country: CA (occurrence: CA)
  Receive Date: 20080430
  Receipt Date: 20121111
  Transmission Date: 20130627
  Serious: Yes (Other)
  Sender: FDA-Public Use
  Company Number: PHMT2007CA01867

PATIENT
  Sex: Male

DRUGS (3)
  1. SANDOSTATIN LAR [Suspect]
     Indication: CARCINOID TUMOUR
     Dosage: 30 mg, every 4 weeks
     Dates: start: 20060216
  2. ADALAT XL [Concomitant]
  3. ELTROXIN [Concomitant]

REACTIONS (16)
  - Heart rate increased [Unknown]
  - Injection site pain [Unknown]
  - Headache [Unknown]
  - Fatigue [Unknown]
  - Abdominal pain [Unknown]
  - Flatulence [Unknown]
  - Diarrhoea [Unknown]
  - Gout [Recovering/Resolving]
  - Gastrointestinal disorder [Unknown]
  - Blood pressure increased [Unknown]
  - Myalgia [Unknown]
  - Weight increased [Unknown]
  - Injection site reaction [Unknown]
  - Muscle spasms [Unknown]
  - Food poisoning [Unknown]
  - Abdominal distension [Unknown]
